FAERS Safety Report 15467942 (Version 3)
Quarter: 2020Q4

REPORT INFORMATION
  Report Type: Spontaneous
  Country: US (occurrence: US)
  Receive Date: 20181005
  Receipt Date: 20201005
  Transmission Date: 20210113
  Serious: No
  Sender: FDA-Public Use
  Company Number: US-SA-2018SA270871

PATIENT

DRUGS (22)
  1. CHOLECALCIFEROL [Concomitant]
     Active Substance: CHOLECALCIFEROL
  2. LISINOPRIL. [Concomitant]
     Active Substance: LISINOPRIL
  3. ESOMEPRAZOLE. [Concomitant]
     Active Substance: ESOMEPRAZOLE MAGNESIUM
  4. FERROUS SULFATE. [Concomitant]
     Active Substance: FERROUS SULFATE
  5. C - [Concomitant]
  6. VITAMIN D3 [Concomitant]
     Active Substance: CHOLECALCIFEROL
  7. CALCITRIOL. [Concomitant]
     Active Substance: CALCITRIOL
  8. CYANOCOBALAMIN. [Concomitant]
     Active Substance: CYANOCOBALAMIN
  9. HYDROCODONE [Concomitant]
     Active Substance: HYDROCODONE
  10. VITAMIN B12 [Concomitant]
     Active Substance: CYANOCOBALAMIN
  11. DIMETHYL FUMARATE [Concomitant]
     Active Substance: DIMETHYL FUMARATE
  12. LYRICA [Concomitant]
     Active Substance: PREGABALIN
  13. MAGNESIUM [Concomitant]
     Active Substance: MAGNESIUM
  14. PRESERVISION AREDS [Concomitant]
     Active Substance: MINERALS\VITAMINS
  15. LORATADINE. [Concomitant]
     Active Substance: LORATADINE
  16. TRAMADOL. [Concomitant]
     Active Substance: TRAMADOL
  17. AUBAGIO [Suspect]
     Active Substance: TERIFLUNOMIDE
     Indication: MULTIPLE SCLEROSIS
     Dosage: 14 MG, QD
     Route: 048
     Dates: start: 20180517
  18. AUBAGIO [Suspect]
     Active Substance: TERIFLUNOMIDE
     Dosage: 14 MG, QD
     Route: 048
     Dates: start: 20200517
  19. ATORVASTATIN [Concomitant]
     Active Substance: ATORVASTATIN
  20. CETRIZINE [Concomitant]
     Active Substance: CETIRIZINE HYDROCHLORIDE
  21. FLUTICASONE. [Concomitant]
     Active Substance: FLUTICASONE
  22. TECFIDERA [Concomitant]
     Active Substance: DIMETHYL FUMARATE

REACTIONS (4)
  - Rotator cuff syndrome [Unknown]
  - Arthropathy [Unknown]
  - Alopecia [Unknown]
  - Condition aggravated [Unknown]

NARRATIVE: CASE EVENT DATE: 201806
